FAERS Safety Report 9277855 (Version 8)
Quarter: 2014Q1

REPORT INFORMATION
  Report Type: Spontaneous
  Country: IE (occurrence: IE)
  Receive Date: 20130508
  Receipt Date: 20140321
  Transmission Date: 20141002
  Serious: Yes (Hospitalization, Other)
  Sender: FDA-Public Use
  Company Number: PHFR2013IE002587

PATIENT
  Age: 64 Year
  Sex: Female

DRUGS (9)
  1. CLOZARIL [Suspect]
     Indication: SCHIZOPHRENIA
     Dosage: 300 MG, UNK
     Route: 048
     Dates: start: 1990
  2. CLOZARIL [Suspect]
     Dosage: UNK
     Route: 048
     Dates: start: 19960814
  3. CLOZARIL [Suspect]
     Dosage: 150 MG, UNK
     Route: 048
     Dates: start: 20010701
  4. CLOZARIL [Suspect]
     Dosage: UNK, DOSE REDUCED
     Route: 048
  5. PROCYCLIDINE [Suspect]
     Indication: PARKINSON^S DISEASE
     Dosage: 25 MG, UNK
     Route: 048
     Dates: start: 2008
  6. PROCYCLIDINE [Suspect]
     Dosage: 5 MG, UNK
     Route: 048
     Dates: start: 2008
  7. DIAMICRON [Concomitant]
     Indication: DIABETES MELLITUS
     Dosage: UNK
     Route: 048
     Dates: start: 2011
  8. NEOCIPRO [Concomitant]
     Indication: PARKINSONISM
     Dosage: UNK
     Route: 048
     Dates: start: 2012
  9. VALPROATE [Concomitant]
     Indication: SCHIZOPHRENIA
     Dosage: 1000 MG, UNK
     Dates: start: 1990

REACTIONS (8)
  - Cerebral atrophy [Not Recovered/Not Resolved]
  - Urinary tract infection [Recovered/Resolved]
  - White blood cell count increased [Recovered/Resolved]
  - Fall [Not Recovered/Not Resolved]
  - Neutrophil count decreased [Recovered/Resolved]
  - Parkinsonism [Not Recovered/Not Resolved]
  - Haemoglobin increased [Recovered/Resolved]
  - Platelet count decreased [Recovered/Resolved]
